FAERS Safety Report 8827579 (Version 2)
Quarter: 2012Q4

REPORT INFORMATION
  Report Type: 
  Country: US (occurrence: US)
  Receive Date: 20121008
  Receipt Date: 20121016
  Transmission Date: 20130627
  Serious: No
  Sender: FDA-Public Use
  Company Number: US-BAYER-2012-102072

PATIENT
  Sex: Female

DRUGS (3)
  1. CLIMARA [Suspect]
     Indication: HORMONE LEVEL ABNORMAL
     Dosage: UNK
     Dates: start: 201204
  2. PROGESTERONE [Concomitant]
     Dosage: 50 mg, QD
  3. SYNTHROID [Concomitant]
     Dosage: 112 mg, UNK

REACTIONS (1)
  - Breast tenderness [Not Recovered/Not Resolved]
